FAERS Safety Report 5277482-9 (Version None)
Quarter: 2007Q1

REPORT INFORMATION
  Report Type: 
  Country: None (occurrence: None)
  Receive Date: 20070327
  Receipt Date: 20070323
  Transmission Date: 20070707
  Serious: Yes (Death)
  Sender: FDA-Public Use
  Company Number: PHHO2006ES16373

PATIENT
  Age: 60 Year
  Sex: Female

DRUGS (12)
  1. CYCLOSPORINE [Suspect]
     Indication: RENAL TRANSPLANT
     Dosage: 100 MG / DAY
     Route: 048
     Dates: start: 19960101
  2. PREDNISONE [Suspect]
     Indication: RENAL TRANSPLANT
     Dosage: 10 MG / DAY
     Route: 048
     Dates: start: 19960101
  3. MYFORTIC [Suspect]
     Indication: RENAL TRANSPLANT
     Dosage: 360 MG / DAY
     Route: 048
     Dates: start: 20060501
  4. FUROSEMIDE [Concomitant]
  5. CLOPIDOGREL [Concomitant]
  6. ATORVASTATIN CALCIUM [Concomitant]
  7. OMEPRAZOLE [Concomitant]
  8. ESPIRONOLACTONA [Concomitant]
  9. SERTRALINE [Concomitant]
  10. GLIBENCLAMIDE [Concomitant]
  11. DIGOXIN [Concomitant]
  12. CARVEDILOL [Concomitant]

REACTIONS (1)
  - SEPTIC SHOCK [None]
